FAERS Safety Report 4646856-9 (Version None)
Quarter: 2005Q2

REPORT INFORMATION
  Report Type: 
  Country: None (occurrence: None)
  Receive Date: 20050331
  Receipt Date: 20050119
  Transmission Date: 20051028
  Serious: No
  Sender: FDA-Public Use
  Company Number: 05P-163-0287219-00

PATIENT
  Age: 80 Year
  Sex: Female
  Weight: 69.4003 kg

DRUGS (8)
  1. HUMIRA [Suspect]
     Indication: RHEUMATOID ARTHRITIS
     Dosage: 40 MG, 1 IN 2 WK, SUBCUTANEOUS
     Route: 058
     Dates: start: 20041201, end: 20050112
  2. MULTIVITAMIN [Concomitant]
  3. CALCIUM GLUCONATE [Concomitant]
  4. BECOSYM FORTE [Concomitant]
  5. PARACETAMOL [Concomitant]
  6. CETIRIZINE HCL [Concomitant]
  7. WARFARIN [Concomitant]
  8. PREDNISONE [Concomitant]

REACTIONS (1)
  - IMPAIRED HEALING [None]
